FAERS Safety Report 5299978-6 (Version None)
Quarter: 2007Q2

REPORT INFORMATION
  Report Type: 
  Country: None (occurrence: None)
  Receive Date: 20070410
  Receipt Date: 20070330
  Transmission Date: 20071010
  Serious: Yes (Other)
  Sender: FDA-Public Use
  Company Number: B0464738A

PATIENT
  Sex: Female

DRUGS (3)
  1. FLOVENT [Suspect]
     Indication: DRUG USE FOR UNKNOWN INDICATION
     Dosage: INHALED
     Route: 055
  2. SEREVENT [Suspect]
     Indication: DRUG USE FOR UNKNOWN INDICATION
     Dosage: INHALED
     Route: 055
  3. VENTOLIN [Suspect]
     Indication: DRUG USE FOR UNKNOWN INDICATION
     Dosage: INHALED
     Route: 055

REACTIONS (3)
  - EYELID OEDEMA [None]
  - FACE OEDEMA [None]
  - MACULAR OEDEMA [None]
